FAERS Safety Report 10056180 (Version 3)
Quarter: 2014Q2

REPORT INFORMATION
  Report Type: Report from Study
  Country: US (occurrence: US)
  Receive Date: 20140403
  Receipt Date: 20140410
  Transmission Date: 20141212
  Serious: Yes (Other)
  Sender: FDA-Public Use
  Company Number: PHEH2014US006082

PATIENT
  Age: 41 Year
  Sex: Female

DRUGS (18)
  1. GILENYA [Suspect]
     Indication: RELAPSING-REMITTING MULTIPLE SCLEROSIS
     Dosage: 0.5 MG, QD
     Route: 048
     Dates: start: 20140320, end: 20140328
  2. CIPRIL [Concomitant]
  3. TOPAMAX [Concomitant]
  4. BACLOFEN [Concomitant]
     Dosage: 10 MG, UNK
  5. CLONAZEPAM [Concomitant]
     Dosage: 0.5 MG, UNK
  6. CIPROFLOXACIN [Concomitant]
     Dosage: 250 MG, UNK
  7. CITALOPRAM [Concomitant]
     Dosage: 20 MG, UNK
  8. ESTRADIOL [Concomitant]
     Dosage: 0.037 MG, UNK
  9. LEVETIRACETAM [Concomitant]
     Dosage: 750 MG, UNK
  10. LEVOTHYROXIN [Concomitant]
     Dosage: 300 UG, UNK
  11. LORAZEPAM [Concomitant]
     Dosage: 2 MG, UNK
  12. METRONIDAZOLE [Concomitant]
     Dosage: 500 MG, UNK
  13. NORTRIPTYLIN [Concomitant]
     Dosage: 50 MG, UNK
  14. PENTAZOCINE AND NALOXONE [Concomitant]
  15. TOPIRAMATE [Concomitant]
     Dosage: 100 MG, UNK
  16. HYDROCODONE/ACETAMINOPHEN [Concomitant]
  17. LORAZEPAM [Concomitant]
  18. LEVETIRACETAM [Concomitant]

REACTIONS (3)
  - Partial seizures [Recovered/Resolved]
  - Diarrhoea [Recovered/Resolved]
  - Heart rate decreased [Unknown]
